FAERS Safety Report 12353652 (Version 1)
Quarter: 2016Q2

REPORT INFORMATION
  Report Type: Spontaneous
  Country: TH (occurrence: TH)
  Receive Date: 20160511
  Receipt Date: 20160511
  Transmission Date: 20160815
  Serious: Yes (Other)
  Sender: FDA-Public Use
  Company Number: TH-CIPLA LTD.-2016TH04641

PATIENT

DRUGS (6)
  1. RANITIDINE. [Concomitant]
     Active Substance: RANITIDINE
     Dosage: 50 MG, 30 MIN BEFORE PACLITAXEL INFUSION
     Route: 042
  2. CARBOPLATIN. [Suspect]
     Active Substance: CARBOPLATIN
     Indication: NEOPLASM MALIGNANT
     Dosage: (AREA UNDER CURVE 5 MG/ML PER MIN, OVER A 30-MIN PERIOD
     Route: 042
  3. PACLITAXEL. [Suspect]
     Active Substance: PACLITAXEL
     Indication: NEOPLASM MALIGNANT
     Dosage: 175 MG/M2, OVER A 3-H PERIOD
     Route: 042
  4. DEXAMETHASONE. [Concomitant]
     Active Substance: DEXAMETHASONE
     Indication: PROPHYLAXIS
     Dosage: 20 MG, 30 MIN BEFORE PACLITAXEL INFUSION
     Route: 042
  5. LACTOSE [Concomitant]
     Active Substance: LACTOSE
     Dosage: UNK, AT 12 AND 6 H BEFORE PACLITAXEL INFUSION
     Route: 048
  6. DIPHENHYDRAMINE. [Concomitant]
     Active Substance: DIPHENHYDRAMINE
     Dosage: 50 MG, 30 MIN BEFORE PACLITAXEL INFUSION
     Route: 042

REACTIONS (1)
  - Liver disorder [Unknown]
